FAERS Safety Report 25574657 (Version 2)
Quarter: 2025Q4

REPORT INFORMATION
  Report Type: Report from Study
  Country: US (occurrence: US)
  Receive Date: 20250718
  Receipt Date: 20251007
  Transmission Date: 20260117
  Serious: No
  Sender: SANDOZ
  Company Number: US-SANDOZ-SDZ2025US049968

PATIENT
  Age: 8 Year
  Sex: Male
  Weight: 27.22 kg

DRUGS (4)
  1. HYRIMOZ [Suspect]
     Active Substance: ADALIMUMAB-ADAZ
     Indication: Juvenile idiopathic arthritis
     Dosage: 40 MG, Q2W ONCE EVERY TWO WEEKS
     Route: 030
     Dates: start: 20250711
  2. HYRIMOZ [Suspect]
     Active Substance: ADALIMUMAB-ADAZ
     Indication: Juvenile idiopathic arthritis
     Dosage: 40 MG, Q2W ONCE EVERY TWO WEEKS
     Route: 030
     Dates: start: 20250711
  3. HYRIMOZ [Suspect]
     Active Substance: ADALIMUMAB-ADAZ
     Dosage: 40 MG, Q2W ONCE EVERY TWO WEEKS
     Route: 065
     Dates: start: 20250813
  4. HYRIMOZ [Suspect]
     Active Substance: ADALIMUMAB-ADAZ
     Dosage: 40 MG, Q2W ONCE EVERY TWO WEEKS
     Route: 065
     Dates: start: 20250813

REACTIONS (3)
  - Drug dose omission by device [Unknown]
  - Incorrect dose administered by device [Unknown]
  - Device malfunction [Unknown]

NARRATIVE: CASE EVENT DATE: 20250701
